FAERS Safety Report 25552881 (Version 1)
Quarter: 2025Q3

REPORT INFORMATION
  Report Type: Spontaneous
  Country: JP (occurrence: JP)
  Receive Date: 20250715
  Receipt Date: 20250715
  Transmission Date: 20251021
  Serious: Yes (Other)
  Sender: GLAXOSMITHKLINE
  Company Number: JP-GSK-JP2025JPN085136

PATIENT
  Age: 1 Year
  Sex: Male

DRUGS (1)
  1. LAMICTAL [Suspect]
     Active Substance: LAMOTRIGINE

REACTIONS (9)
  - Clonic convulsion [Unknown]
  - Ventricular tachycardia [Recovered/Resolved]
  - Circulatory collapse [Unknown]
  - Toxicity to various agents [Unknown]
  - Vomiting [Unknown]
  - Nodal rhythm [Recovered/Resolved]
  - Sinus bradycardia [Recovered/Resolved]
  - Sinus tachycardia [Recovered/Resolved]
  - Accidental exposure to product by child [Unknown]
